FAERS Safety Report 6997098-3 (Version None)
Quarter: 2010Q3

REPORT INFORMATION
  Report Type: 
  Country: None (occurrence: None)
  Receive Date: 20100918
  Receipt Date: 20090909
  Transmission Date: 20110219
  Serious: No
  Sender: FDA-Public Use
  Company Number: US-WYE-H10913609

PATIENT
  Sex: Male

DRUGS (14)
  1. PRISTIQ [Suspect]
     Route: 048
     Dates: start: 20090801
  2. SIMVASTATIN [Concomitant]
  3. GLIMEPIRIDE [Concomitant]
  4. SITAGLIPTIN [Concomitant]
  5. METFORMIN [Concomitant]
  6. ZOLPIDEM [Concomitant]
  7. FLUTICASONE PROPIONATE [Concomitant]
  8. METOPROLOL [Concomitant]
  9. LEVOXYL [Concomitant]
  10. FAMOTIDINE [Concomitant]
  11. LOTREL [Concomitant]
  12. FLOMAX [Concomitant]
  13. PLAVIX [Concomitant]
  14. ALPRAZOLAM [Concomitant]

REACTIONS (2)
  - CONDITION AGGRAVATED [None]
  - TYPE 2 DIABETES MELLITUS [None]
